FAERS Safety Report 6696157-2 (Version None)
Quarter: 2010Q2

REPORT INFORMATION
  Report Type: 
  Country: None (occurrence: None)
  Receive Date: 20100426
  Receipt Date: 20100422
  Transmission Date: 20101027
  Serious: Yes (Life-Threatening, Hospitalization)
  Sender: FDA-Public Use
  Company Number: FR-ASTRAZENECA-2010SE18022

PATIENT
  Age: 31100 Day
  Sex: Female

DRUGS (9)
  1. DIPRIVAN [Suspect]
     Indication: INDUCTION OF ANAESTHESIA
     Route: 042
     Dates: start: 20100114, end: 20100114
  2. CELOCURINE [Suspect]
     Indication: INDUCTION OF ANAESTHESIA
     Route: 042
     Dates: start: 20100114, end: 20100114
  3. SUFENTA PRESERVATIVE FREE [Concomitant]
     Dates: start: 20100114, end: 20100114
  4. TRACRIUM [Concomitant]
     Dates: start: 20100114, end: 20100114
  5. TAHOR [Concomitant]
  6. NEXIUM [Concomitant]
  7. PLAVIX [Concomitant]
  8. ALLOPURINOL [Concomitant]
  9. COAPROVEL [Concomitant]

REACTIONS (3)
  - ANAPHYLACTIC SHOCK [None]
  - EYELID OEDEMA [None]
  - LACRIMATION INCREASED [None]
